FAERS Safety Report 13891102 (Version 1)
Quarter: 2017Q3

REPORT INFORMATION
  Report Type: Spontaneous
  Country: GB (occurrence: GB)
  Receive Date: 20170822
  Receipt Date: 20170822
  Transmission Date: 20171127
  Serious: Yes (Other)
  Sender: FDA-Public Use
  Company Number: GB-PFIZER INC-2017355770

PATIENT
  Age: 59 Year
  Sex: Female
  Weight: 86 kg

DRUGS (39)
  1. IRBESARTAN. [Concomitant]
     Active Substance: IRBESARTAN
     Dosage: 1 DF, 2X/DAY
     Dates: start: 20170228
  2. CHEMYDUR [Concomitant]
     Dosage: UNK, 2AM.
     Dates: start: 20170228, end: 20170804
  3. CLOPIDOGREL [Concomitant]
     Active Substance: CLOPIDOGREL BISULFATE
     Dosage: 1 DF, 1X/DAY
     Dates: start: 20170804
  4. DOXAZOSIN [Concomitant]
     Active Substance: DOXAZOSIN\DOXAZOSIN MESYLATE
     Dosage: 2 DF, 2X/DAY
     Dates: start: 20170228
  5. HYDROXYCARBAMIDE [Concomitant]
     Active Substance: HYDROXYUREA
     Dosage: 1 DF, 1X/DAY
     Dates: start: 20170228, end: 20170804
  6. SENNA /00142201/ [Concomitant]
     Active Substance: SENNA LEAF
     Dosage: 2 DF, TWICE DAILY
     Dates: start: 20170228
  7. TIOTROPIUM [Concomitant]
     Active Substance: TIOTROPIUM
     Dosage: 1 DF, 1X/DAY
     Route: 055
     Dates: start: 20170228, end: 20170804
  8. TORASEMIDE [Concomitant]
     Active Substance: TORSEMIDE
     Dosage: 3 DF, 1X/DAY, IN THE MORNING.
     Dates: start: 20170228, end: 20170804
  9. GLYCERYL TRINITRATE [Concomitant]
     Active Substance: NITROGLYCERIN
     Dosage: 1 DF, 1X/DAY, SPRAY ONE PUFF UNDER THE TONGUE WHEN REQUIRED. ...
     Route: 060
     Dates: start: 20170804
  10. HUMALOG [Concomitant]
     Active Substance: INSULIN LISPRO
     Dosage: 14 IU, 2X/DAY, 14 UNITS WITH LUNCH AND 14 UNITS WITH DINNER.
     Dates: start: 20170228, end: 20170804
  11. LAXIDO [Concomitant]
     Active Substance: POLYETHYLENE GLYCOL 3350\POTASSIUM CHLORIDE\SODIUM BICARBONATE\SODIUM CHLORIDE
     Dosage: 1 DF, 2X/DAY, TAKE ONE TWICE A DAY
     Dates: start: 20170804
  12. SERTRALINE [Concomitant]
     Active Substance: SERTRALINE HYDROCHLORIDE
     Dosage: 1 DF, 1X/DAY, EACH MORNING
     Dates: start: 20170804
  13. BRALTUS [Concomitant]
     Dosage: 1 DF, 1X/DAY
     Route: 055
     Dates: start: 20170804
  14. CLOBETASOL PROPIONATE. [Concomitant]
     Active Substance: CLOBETASOL PROPIONATE
     Dosage: 1 DF, 2X/DAY
     Dates: start: 20140213, end: 20170804
  15. FENTANYL. [Concomitant]
     Active Substance: FENTANYL
     Dosage: 1 DF, EVERY 3 DAYS, PATCH
     Dates: start: 20170804
  16. ACIDEX [Concomitant]
     Active Substance: CALCIUM CARBONATE\SODIUM ALGINATE\SODIUM BICARBONATE
     Dosage: 5 ML, 4 TIMES/DAY
     Dates: start: 20170804
  17. PREGABALIN. [Concomitant]
     Active Substance: PREGABALIN
     Dosage: 1 DF, 1X/DAY, AT NIGHT
     Dates: start: 20170804
  18. SODIUM BICARBONATE. [Concomitant]
     Active Substance: SODIUM BICARBONATE
     Dosage: 1 DF, 2X/DAY
     Dates: start: 20170228, end: 20170804
  19. CALCICHEW [Concomitant]
     Active Substance: CALCIUM CARBONATE
     Dosage: 1 DF, 1X/DAY
     Dates: start: 20170228, end: 20170804
  20. DOCUSATE SODIUM. [Concomitant]
     Active Substance: DOCUSATE SODIUM
     Dosage: 2 DF, 3X/DAY
     Dates: start: 20170804
  21. FOSTAIR [Concomitant]
     Active Substance: BECLOMETHASONE\FORMOTEROL
     Dosage: 1 DF, 2X/DAY
     Dates: start: 20170228
  22. WARFARIN SODIUM. [Concomitant]
     Active Substance: WARFARIN SODIUM
     Dosage: UNK, TAKE AS DIRECTED IN YELLOW BOOK.
     Dates: start: 20170228, end: 20170804
  23. ABASAGLAR [Concomitant]
     Active Substance: INSULIN GLARGINE
     Dosage: 18 IU, IN THE MORNING.
     Dates: start: 20170228
  24. ALFACALCIDOL [Concomitant]
     Active Substance: ALFACALCIDOL
     Dosage: 1 DF, 1X/DAY
     Dates: start: 20170228
  25. AMITRIPTYLINE HYDROCHLORIDE. [Concomitant]
     Active Substance: AMITRIPTYLINE HYDROCHLORIDE
     Dosage: 1 DF, 1X/DAY, AT NIGHT.
     Dates: start: 20170228, end: 20170804
  26. HYDRALAZINE [Concomitant]
     Active Substance: HYDRALAZINE HYDROCHLORIDE
     Dosage: 2 DF, 2X/DAY
     Dates: start: 20170228
  27. LACTULOSE. [Concomitant]
     Active Substance: LACTULOSE
     Dosage: 15 ML, 2X/DAY
     Dates: start: 20170801
  28. LANSOPRAZOLE. [Concomitant]
     Active Substance: LANSOPRAZOLE
     Dosage: 1 DF, 2X/DAY
     Dates: start: 20170228
  29. ALPHOSYL /01514901/ [Concomitant]
     Dosage: 1 DF, 2X/WEEK
     Dates: start: 20170228, end: 20170804
  30. AMLODIPINE [Concomitant]
     Active Substance: AMLODIPINE BESYLATE
     Indication: ILL-DEFINED DISORDER
     Dosage: 1 DF, 1X/DAY
     Dates: start: 20170228
  31. ATORVASTATIN [Concomitant]
     Active Substance: ATORVASTATIN
     Dosage: 1 DF, 1X/DAY
     Dates: start: 20170228
  32. AZATHIOPRINE. [Concomitant]
     Active Substance: AZATHIOPRINE
     Dosage: 2 DF, 1X/DAY
     Dates: start: 20170228, end: 20170804
  33. BISOPROLOL [Concomitant]
     Active Substance: BISOPROLOL
     Dosage: 1 DF, 1X/DAY
     Dates: start: 20170228
  34. CETOMACROGOL [Concomitant]
     Active Substance: COSMETICS
     Dosage: 1 DF, AS DIRECTED.
     Dates: start: 20170804
  35. NEORECORMON [Concomitant]
     Active Substance: ERYTHROPOIETIN
     Dosage: 1 DF, 3 TIMES A WEEK, TUESDAY/THURSDAY/SATURDAY WITH DIALYSIS.
     Dates: start: 20170804
  36. CIPROFLOXACIN. [Suspect]
     Active Substance: CIPROFLOXACIN
     Dosage: UNK
     Dates: start: 20170804
  37. FOLIC ACID. [Concomitant]
     Active Substance: FOLIC ACID
     Dosage: 1 DF, 1X/DAY
     Dates: start: 20170228
  38. PARACETAMOL [Concomitant]
     Active Substance: ACETAMINOPHEN
     Dosage: UNK ,TAKE 1 OR 2 4 TIMES/DAY.
     Dates: start: 20170228
  39. SEVELAMER [Concomitant]
     Active Substance: SEVELAMER
     Dosage: 2 DF, 3X/DAY, 2TDS
     Dates: start: 20170804

REACTIONS (1)
  - Dermatitis bullous [Recovered/Resolved]

NARRATIVE: CASE EVENT DATE: 20170804
